FAERS Safety Report 10592887 (Version 3)
Quarter: 2014Q4

REPORT INFORMATION
  Report Type: Report from Study
  Country: AU (occurrence: AU)
  Receive Date: 20141119
  Receipt Date: 20141217
  Transmission Date: 20150529
  Serious: Yes (Other)
  Sender: FDA-Public Use
  Company Number: PHHY2014AU145955

PATIENT
  Age: 28 Year
  Sex: Male
  Weight: 102 kg

DRUGS (7)
  1. OLANZAPINE. [Concomitant]
     Active Substance: OLANZAPINE
     Indication: SCHIZOPHRENIA
     Dosage: 5 MG, QD (AT NLIGHT)
     Route: 065
  2. PANTOPRAZOLE [Concomitant]
     Active Substance: PANTOPRAZOLE SODIUM
     Indication: GASTROOESOPHAGEAL REFLUX DISEASE
     Dosage: 40 MG, QD (MORNING)
     Route: 065
     Dates: end: 20141110
  3. CLOZARIL [Suspect]
     Active Substance: CLOZAPINE
     Indication: SCHIZOPHRENIA
     Dosage: 250 MG, QD (AT NIGHT)
     Route: 048
     Dates: end: 20141110
  4. OLANZAPINE. [Concomitant]
     Active Substance: OLANZAPINE
     Indication: ADJUVANT THERAPY
     Dosage: 405 MG, 3 WEEKS IN A YEAR (DEPOT)
     Route: 030
     Dates: end: 20141110
  5. SODIUM VALPROATE [Concomitant]
     Active Substance: VALPROATE SODIUM
     Indication: ADJUVANT THERAPY
     Dosage: 2000 MG, (500 MG IN MORNING AND 1500 MG AT NIGHT)
     Route: 048
     Dates: end: 20141110
  6. FLUVOXAMINE [Concomitant]
     Active Substance: FLUVOXAMINE
     Indication: ADJUVANT THERAPY
     Dosage: 50 MG, QD (AT NIGHT)
     Route: 065
     Dates: end: 20141110
  7. ATROPINE [Concomitant]
     Active Substance: ATROPINE
     Indication: SALIVARY HYPERSECRETION
     Dosage: 1 TO 2 DROPS AT NIGHT
     Route: 065

REACTIONS (6)
  - Tricuspid valve incompetence [Unknown]
  - Pulmonary valve incompetence [Unknown]
  - Cardiomyopathy [Unknown]
  - Left ventricular dysfunction [Unknown]
  - Antipsychotic drug level above therapeutic [Unknown]
  - Mitral valve incompetence [Unknown]

NARRATIVE: CASE EVENT DATE: 20141020
